FAERS Safety Report 7610750-1 (Version None)
Quarter: 2011Q3

REPORT INFORMATION
  Report Type: 
  Country: None (occurrence: None)
  Receive Date: 20110715
  Receipt Date: 20110708
  Transmission Date: 20111222
  Serious: Yes (Hospitalization, Other)
  Sender: FDA-Public Use
  Company Number: US-ELI_LILLY_AND_COMPANY-US201107002734

PATIENT
  Age: 61 Year
  Sex: Female

DRUGS (1)
  1. HUMALOG [Suspect]
     Indication: DIABETES MELLITUS
     Dosage: UNK, PRN

REACTIONS (3)
  - EYE MOVEMENT DISORDER [None]
  - PRODUCT CONTAMINATION PHYSICAL [None]
  - CEREBROVASCULAR ACCIDENT [None]
